FAERS Safety Report 7430975-8 (Version None)
Quarter: 2011Q2

REPORT INFORMATION
  Report Type: 
  Country: None (occurrence: None)
  Receive Date: 20110421
  Receipt Date: 20110419
  Transmission Date: 20111010
  Serious: Yes (Death, Hospitalization)
  Sender: FDA-Public Use
  Company Number: PHHY2011GB32584

PATIENT
  Age: 35 Year
  Sex: Male

DRUGS (5)
  1. SALMETEROL [Suspect]
     Indication: ASTHMA
  2. FLUTICASONE PROPIONATE [Suspect]
     Indication: ASTHMA
     Route: 048
  3. OMALIZUMAB [Suspect]
     Dosage: 1 DF, QW2
     Route: 042
     Dates: start: 20080101
  4. PREDNISOLONE [Suspect]
     Indication: ASTHMA
     Route: 048
  5. ALBUTEROL SULFATE AUTOHALER [Suspect]
     Indication: ASTHMA

REACTIONS (14)
  - ERECTILE DYSFUNCTION [None]
  - EPIDURAL LIPOMATOSIS [None]
  - PNEUMONIA [None]
  - ASTHENIA [None]
  - GAIT DISTURBANCE [None]
  - HYPERREFLEXIA [None]
  - WEIGHT INCREASED [None]
  - ASTHMA [None]
  - CUSHINGOID [None]
  - SENSORY DISTURBANCE [None]
  - HYPOAESTHESIA [None]
  - HYPERTONIA [None]
  - URINARY INCONTINENCE [None]
  - BACK PAIN [None]
